FAERS Safety Report 5258896-X (Version None)
Quarter: 2007Q1

REPORT INFORMATION
  Report Type: 
  Country: None (occurrence: None)
  Receive Date: 20070308
  Receipt Date: 20070227
  Transmission Date: 20070707
  Serious: Yes (Life-Threatening, Hospitalization)
  Sender: FDA-Public Use
  Company Number: US-MERCK-0702USA00171

PATIENT
  Age: 39 Year
  Sex: Male
  Weight: 104 kg

DRUGS (1)
  1. VYTORIN [Suspect]
     Route: 048
     Dates: end: 20070101

REACTIONS (2)
  - CHEST PAIN [None]
  - RHABDOMYOLYSIS [None]
